FAERS Safety Report 6640303-3 (Version None)
Quarter: 2010Q1

REPORT INFORMATION
  Report Type: 
  Country: None (occurrence: None)
  Receive Date: 20100318
  Receipt Date: 20100310
  Transmission Date: 20100710
  Serious: Yes (Hospitalization)
  Sender: FDA-Public Use
  Company Number: US-BAYER-201013039BCC

PATIENT
  Age: 87 Year
  Sex: Female

DRUGS (6)
  1. ASPIRIN [Suspect]
     Indication: STENT PLACEMENT
     Route: 065
     Dates: start: 20091101, end: 20091215
  2. PLAVIX [Suspect]
     Indication: STENT PLACEMENT
     Dosage: TOTAL DAILY DOSE: 75 MG  UNIT DOSE: 75 MG
     Route: 048
     Dates: start: 20091101, end: 20091216
  3. PLAVIX [Suspect]
     Dosage: TOTAL DAILY DOSE: 75 MG  UNIT DOSE: 75 MG
     Route: 048
     Dates: start: 20091220
  4. PLAVIX [Suspect]
     Dosage: TOTAL DAILY DOSE: 75 MG  UNIT DOSE: 75 MG
     Route: 048
  5. PLAVIX [Suspect]
     Dosage: TOTAL DAILY DOSE: 75 MG  UNIT DOSE: 75 MG
     Route: 048
     Dates: end: 20100226
  6. ATENOLOL [Concomitant]
     Route: 065

REACTIONS (7)
  - ANEURYSM [None]
  - CATHETER SITE HAEMORRHAGE [None]
  - DIZZINESS [None]
  - EPISTAXIS [None]
  - HAEMATOMA [None]
  - HYPOTENSION [None]
  - POST PROCEDURAL HAEMATOMA [None]
